FAERS Safety Report 9220043 (Version 1)
Quarter: 2013Q2

REPORT INFORMATION
  Report Type: Spontaneous
  Country: CH (occurrence: None)
  Receive Date: 20130405
  Receipt Date: 20130405
  Transmission Date: 20140414
  Serious: Yes (Other)
  Sender: FDA-Public Use
  Company Number: SP06539

PATIENT
  Age: 50 Year
  Sex: Female

DRUGS (1)
  1. MOVIPREP [Suspect]
     Indication: COLONOSCOPY
     Route: 048
     Dates: start: 20130327, end: 20130328

REACTIONS (1)
  - Diverticular perforation [None]
